FAERS Safety Report 7640865-3 (Version None)
Quarter: 2011Q3

REPORT INFORMATION
  Report Type: 
  Country: None (occurrence: None)
  Receive Date: 20110728
  Receipt Date: 20110719
  Transmission Date: 20111222
  Serious: Yes (Other)
  Sender: FDA-Public Use
  Company Number: US-AMGEN-USASP2011036696

PATIENT
  Age: 63 Year
  Sex: Female

DRUGS (11)
  1. FEMARA [Concomitant]
  2. CELEBREX [Concomitant]
  3. ZOCOR [Concomitant]
  4. ASTELIN                            /00085801/ [Concomitant]
  5. CIPRO [Concomitant]
  6. CORTICOSTEROID NOS [Concomitant]
  7. TRIAMTERENE AND HYDROCHLOROTHIAZIDE [Concomitant]
  8. PROLIA [Suspect]
     Indication: OSTEOPOROSIS POSTMENOPAUSAL
     Dosage: 60 MG, Q6MO
     Dates: start: 20110101
  9. SINGULAIR [Concomitant]
  10. PROPRANOLOL EG [Concomitant]
  11. CALCIUM WITH VITAMIN D             /00944201/ [Concomitant]

REACTIONS (2)
  - TOOTH DISORDER [None]
  - BREAST RECONSTRUCTION [None]
